FAERS Safety Report 8472951-2 (Version None)
Quarter: 2012Q2

REPORT INFORMATION
  Report Type: 
  Country: None (occurrence: None)
  Receive Date: 20120627
  Receipt Date: 20120621
  Transmission Date: 20120825
  Serious: Yes (Death)
  Sender: FDA-Public Use
  Company Number: US-CELGENEUS-163-21880-12063476

PATIENT
  Sex: Male
  Weight: 91.254 kg

DRUGS (5)
  1. REVLIMID [Suspect]
     Indication: MULTIPLE MYELOMA
     Dosage: 25 MILLIGRAM
     Route: 048
     Dates: start: 20110511, end: 20120530
  2. COUMADIN [Concomitant]
     Dosage: 4 MILLIGRAM
     Route: 065
  3. NEXIUM [Concomitant]
     Dosage: 20 MILLIGRAM
     Route: 065
  4. CHOLECALCIFEROL [Concomitant]
     Dosage: 400 UNITS/ML
     Route: 048
  5. LYRICA [Concomitant]
     Dosage: 25 MILLIGRAM
     Route: 065

REACTIONS (1)
  - DEATH [None]
